FAERS Safety Report 5781835-X (Version None)
Quarter: 2008Q2

REPORT INFORMATION
  Report Type: 
  Country: None (occurrence: None)
  Receive Date: 20080623
  Receipt Date: 20080114
  Transmission Date: 20081010
  Serious: No
  Sender: FDA-Public Use
  Company Number: US-ASTRAZENECA-2008UW00953

PATIENT
  Age: 84 Year
  Sex: Female
  Weight: 57.2 kg

DRUGS (2)
  1. RHINOCORT [Suspect]
     Indication: HYPERSENSITIVITY
     Dosage: 1 SPRAY/NOSTRIL, 32 MCG, 300 M SPRAY/UNIT SAMPLE
     Route: 045
  2. OXYGEN [Concomitant]

REACTIONS (1)
  - ACNE [None]
